FAERS Safety Report 18124534 (Version 1)
Quarter: 2020Q3

REPORT INFORMATION
  Report Type: Spontaneous
  Country: US (occurrence: US)
  Receive Date: 20200807
  Receipt Date: 20200807
  Transmission Date: 20201103
  Serious: No
  Sender: FDA-Public Use
  Company Number: US-PFIZER INC-2019218769

PATIENT
  Age: 71 Year
  Sex: Female
  Weight: 102.1 kg

DRUGS (3)
  1. LYRICA [Suspect]
     Active Substance: PREGABALIN
     Dosage: 50 MG (1 CAP), TWICE A DAY FOR TWO WEEKS
  2. LYRICA [Suspect]
     Active Substance: PREGABALIN
     Dosage: 150 MG, UNK
  3. LYRICA [Suspect]
     Active Substance: PREGABALIN
     Dosage: 100 MG (2 CAPS), TWICE A DAY FOR TWO WEEKS

REACTIONS (5)
  - Product use issue [Unknown]
  - Intervertebral disc degeneration [Unknown]
  - Off label use [Unknown]
  - Osteoarthritis [Unknown]
  - Radiculopathy [Unknown]
